FAERS Safety Report 12525932 (Version 1)
Quarter: 2016Q3

REPORT INFORMATION
  Report Type: Spontaneous
  Country: BE (occurrence: BE)
  Receive Date: 20160705
  Receipt Date: 20160705
  Transmission Date: 20161109
  Serious: Yes (Life-Threatening, Hospitalization, Other)
  Sender: FDA-Public Use
  Company Number: BE-PFIZER INC-2016302731

PATIENT
  Age: 79 Year
  Sex: Male
  Weight: 66 kg

DRUGS (19)
  1. XALKORI [Suspect]
     Active Substance: CRIZOTINIB
     Indication: LUNG NEOPLASM MALIGNANT
     Dosage: 250 MG, 2X/DAY
     Route: 048
     Dates: start: 20160505, end: 20160521
  2. TWYNSTA [Concomitant]
     Active Substance: AMLODIPINE BESYLATE\TELMISARTAN
     Dosage: 1 DF, 1X/DAY
     Route: 048
  3. INEGY [Concomitant]
     Active Substance: EZETIMIBE\SIMVASTATIN
     Dosage: 10/40 MG, 1X/DAY
     Route: 048
  4. TRAZODONE [Concomitant]
     Active Substance: TRAZODONE HYDROCHLORIDE
     Dosage: 100 MG, 1X/DAY
     Route: 048
  5. STEOVIT D3 [Concomitant]
     Active Substance: CALCIUM CARBONATE\CHOLECALCIFEROL
     Dosage: 1 DF, 1X/DAY
     Route: 048
     Dates: start: 20160426
  6. BEFACT /00527001/ [Concomitant]
     Dosage: 1 DF, 2X/DAY
     Route: 048
  7. XGEVA [Concomitant]
     Active Substance: DENOSUMAB
     Dosage: 120 MG, EVERY 4 WEEKS
     Route: 058
     Dates: start: 20160426
  8. PLAVIX [Concomitant]
     Active Substance: CLOPIDOGREL BISULFATE
     Dosage: 75 MG, 1X/DAY
     Route: 048
     Dates: end: 201605
  9. GLURENORM [Concomitant]
     Dosage: 0.5 UNK, 1X/DAY
     Route: 048
  10. SERLAIN /01011401/ [Concomitant]
     Dosage: 50 MG, 1X/DAY
     Route: 048
  11. DUROGESIC [Concomitant]
     Active Substance: FENTANYL
     Dosage: 25 UG, EVERY 3 DAYS
     Route: 003
     Dates: start: 20160429, end: 201605
  12. LYSANXIA [Concomitant]
     Active Substance: PRAZEPAM
     Dosage: 10 GTT, AS NEEDED
  13. ALLOPURINOL. [Concomitant]
     Active Substance: ALLOPURINOL
     Dosage: 300 MG, 1X/DAY
     Route: 048
  14. ISOBETADINE [Concomitant]
     Indication: PARONYCHIA
  15. BISOPROLOL [Concomitant]
     Active Substance: BISOPROLOL
     Dosage: 1.25 MG, 1X/DAY
     Route: 048
  16. PANTOMED /01263204/ [Concomitant]
     Active Substance: PANTOPRAZOLE SODIUM
     Dosage: 20 MG, 1X/DAY
     Route: 048
  17. DULCOLAX (BISACODYL) [Concomitant]
     Active Substance: BISACODYL
     Dosage: 1 DF, ALTERNATE DAY
     Route: 048
  18. CARDIOASPIRINE [Concomitant]
     Active Substance: ASPIRIN
     Dosage: 1 DF, 1X/DAY
     Route: 048
  19. DAFALGAN [Concomitant]
     Active Substance: ACETAMINOPHEN
     Dosage: 1 G, 4X/DAY
     Route: 048

REACTIONS (15)
  - Oedema peripheral [Unknown]
  - Feeling drunk [Unknown]
  - Interstitial lung disease [Recovering/Resolving]
  - Gait disturbance [Unknown]
  - Dehydration [Unknown]
  - Pyrexia [Recovered/Resolved]
  - Deep vein thrombosis [Unknown]
  - Hypoalbuminaemia [Unknown]
  - Colitis [Recovering/Resolving]
  - Anaemia [Unknown]
  - Decreased appetite [Unknown]
  - Vertigo [Unknown]
  - Product use issue [Unknown]
  - General physical health deterioration [Unknown]
  - Acute kidney injury [Recovering/Resolving]

NARRATIVE: CASE EVENT DATE: 20160531
